FAERS Safety Report 5984081-X (Version None)
Quarter: 2008Q4

REPORT INFORMATION
  Report Type: 
  Country: None (occurrence: None)
  Receive Date: 20081208
  Receipt Date: 20081203
  Transmission Date: 20090506
  Serious: Yes (Hospitalization)
  Sender: FDA-Public Use
  Company Number: US-ELI_LILLY_AND_COMPANY-US200810007328

PATIENT
  Sex: Female

DRUGS (8)
  1. ALIMTA [Suspect]
     Indication: NON-SMALL CELL LUNG CANCER
     Dates: end: 20081002
  2. GEMZAR [Suspect]
     Indication: NON-SMALL CELL LUNG CANCER STAGE IV
     Dates: start: 20081112
  3. VITAMIN B-12 [Concomitant]
     Route: 030
  4. FOLIC ACID [Concomitant]
     Route: 048
  5. ZOFRAN [Concomitant]
  6. CARBOPLATIN [Concomitant]
     Indication: NON-SMALL CELL LUNG CANCER STAGE IV
     Dates: start: 20081119
  7. PEGFILGRASTIM [Concomitant]
     Indication: NON-SMALL CELL LUNG CANCER STAGE IV
  8. PLAVIX [Concomitant]

REACTIONS (14)
  - ABDOMINAL DISTENSION [None]
  - ABDOMINAL PAIN [None]
  - DIARRHOEA [None]
  - DIVERTICULITIS [None]
  - FATIGUE [None]
  - FLATULENCE [None]
  - GASTRIC DISORDER [None]
  - HAEMORRHOIDS [None]
  - HEADACHE [None]
  - INFUSION SITE PAIN [None]
  - OROPHARYNGEAL PAIN [None]
  - PAIN IN EXTREMITY [None]
  - RECTAL HAEMORRHAGE [None]
  - VOMITING [None]
